FAERS Safety Report 18572298 (Version 2)
Quarter: 2021Q1

REPORT INFORMATION
  Report Type: Report from Study
  Country: None (occurrence: CA)
  Receive Date: 20201203
  Receipt Date: 20210106
  Transmission Date: 20210419
  Serious: Yes (Other)
  Sender: FDA-Public Use
  Company Number: CA-ABBVIE-20K-028-3669730-00

PATIENT
  Age: 59 Year
  Sex: Female

DRUGS (2)
  1. RINVOQ [Suspect]
     Active Substance: UPADACITINIB
     Route: 048
  2. RINVOQ [Suspect]
     Active Substance: UPADACITINIB
     Indication: PRODUCT USED FOR UNKNOWN INDICATION
     Route: 048
     Dates: start: 20200410

REACTIONS (11)
  - Upper limb fracture [Unknown]
  - Weight increased [Unknown]
  - Lip injury [Unknown]
  - Skin laceration [Unknown]
  - Avulsion fracture [Unknown]
  - Skin abrasion [Unknown]
  - Eye injury [Unknown]
  - Fall [Unknown]
  - Pain in extremity [Unknown]
  - Hand fracture [Unknown]
  - Arthralgia [Unknown]

NARRATIVE: CASE EVENT DATE: 2020
